FAERS Safety Report 16433038 (Version 2)
Quarter: 2020Q3

REPORT INFORMATION
  Report Type: Spontaneous
  Country: GB (occurrence: GB)
  Receive Date: 20190614
  Receipt Date: 20200918
  Transmission Date: 20201102
  Serious: Yes (Disabling)
  Sender: FDA-Public Use
  Company Number: GB-BAYER-2019-109400

PATIENT
  Age: 21 Year
  Sex: Male

DRUGS (1)
  1. CIPROXIN 500 MG [Suspect]
     Active Substance: CIPROFLOXACIN
     Indication: GASTROINTESTINAL INFECTION
     Dosage: 500 MG, QD
     Route: 048

REACTIONS (5)
  - C-reactive protein increased [Unknown]
  - Red blood cell sedimentation rate increased [Not Recovered/Not Resolved]
  - Arthralgia [Not Recovered/Not Resolved]
  - Joint swelling [Not Recovered/Not Resolved]
  - Joint stiffness [Not Recovered/Not Resolved]
